FAERS Safety Report 10569615 (Version 4)
Quarter: 2016Q3

REPORT INFORMATION
  Report Type: Report from Study
  Country: BR (occurrence: BR)
  Receive Date: 20141107
  Receipt Date: 20160722
  Transmission Date: 20161109
  Serious: Yes (Hospitalization, Other)
  Sender: FDA-Public Use
  Company Number: BR-ROCHE-1443909

PATIENT
  Age: 58 Year
  Sex: Female
  Weight: 68 kg

DRUGS (14)
  1. ACTEMRA [Suspect]
     Active Substance: TOCILIZUMAB
     Indication: RHEUMATOID ARTHRITIS
     Dosage: MOST RECENT INFUSION WAS ON 19/JUN/2016.
     Route: 042
     Dates: start: 20140618
  2. CHLOROQUINE. [Concomitant]
     Active Substance: CHLOROQUINE
     Indication: FIBROMYALGIA
  3. TRAMADOL. [Concomitant]
     Active Substance: TRAMADOL
     Dosage: ONE IN THE MORNING
     Route: 065
  4. PREDNISONE. [Concomitant]
     Active Substance: PREDNISONE
     Indication: RHEUMATOID ARTHRITIS
     Dosage: ONE IN THE MORNING
     Route: 065
  5. TRAMADOL. [Concomitant]
     Active Substance: TRAMADOL
     Indication: RHEUMATOID ARTHRITIS
     Route: 065
  6. SELOZOK [Concomitant]
     Active Substance: METOPROLOL SUCCINATE
     Indication: HYPERTENSION
     Dosage: 1 TABLET OF 50 MG IN THE MORNING AND ANOTHER TABLET AT NIGHT
     Route: 048
  7. CHLOROQUINE. [Concomitant]
     Active Substance: CHLOROQUINE
     Indication: RHEUMATOID ARTHRITIS
     Dosage: ONE IN THE MORNING
     Route: 065
  8. PREDNISONE. [Concomitant]
     Active Substance: PREDNISONE
     Indication: FIBROMYALGIA
     Route: 065
  9. ALPRAZOLAM. [Concomitant]
     Active Substance: ALPRAZOLAM
     Indication: FIBROMYALGIA
     Route: 065
  10. AMITRIPTYLINE [Concomitant]
     Active Substance: AMITRIPTYLINE
     Indication: RHEUMATOID ARTHRITIS
     Dosage: ONE AT NIGHT
     Route: 065
  11. METHOTREXATE. [Concomitant]
     Active Substance: METHOTREXATE
     Indication: RHEUMATOID ARTHRITIS
  12. TRAMADOL. [Concomitant]
     Active Substance: TRAMADOL
     Indication: FIBROMYALGIA
     Dosage: ONE AT NIGHT
     Route: 065
  13. ALPRAZOLAM. [Concomitant]
     Active Substance: ALPRAZOLAM
     Indication: RHEUMATOID ARTHRITIS
     Dosage: ONE AT NIGHT
     Route: 065
  14. AMITRIPTYLINE [Concomitant]
     Active Substance: AMITRIPTYLINE
     Indication: FIBROMYALGIA
     Route: 065

REACTIONS (11)
  - Blister [Unknown]
  - Immunodeficiency [Unknown]
  - Arthralgia [Not Recovered/Not Resolved]
  - Nephrolithiasis [Unknown]
  - Furuncle [Not Recovered/Not Resolved]
  - Spinal pain [Not Recovered/Not Resolved]
  - Stress [Unknown]
  - Hypertension [Not Recovered/Not Resolved]
  - Kidney infection [Unknown]
  - Phlebitis [Not Recovered/Not Resolved]
  - Oral herpes [Recovering/Resolving]

NARRATIVE: CASE EVENT DATE: 201607
